FAERS Safety Report 23534236 (Version 3)
Quarter: 2024Q1

REPORT INFORMATION
  Report Type: Spontaneous
  Country: US (occurrence: US)
  Receive Date: 20240216
  Receipt Date: 20240306
  Transmission Date: 20240409
  Serious: No
  Sender: FDA-Public Use
  Company Number: US-ABBVIE-5640231

PATIENT
  Sex: Female
  Weight: 61 kg

DRUGS (2)
  1. LATISSE [Suspect]
     Active Substance: BIMATOPROST
     Indication: Growth of eyelashes
     Dosage: SEE AED
     Route: 061
     Dates: start: 20240118, end: 20240120
  2. LATISSE [Suspect]
     Active Substance: BIMATOPROST
     Dosage: SEE AED
     Route: 061
     Dates: start: 202402, end: 20240209

REACTIONS (14)
  - Periorbital irritation [Recovered/Resolved]
  - Eye irritation [Unknown]
  - Eye irritation [Not Recovered/Not Resolved]
  - Dry eye [Unknown]
  - Dark circles under eyes [Not Recovered/Not Resolved]
  - Periorbital swelling [Not Recovered/Not Resolved]
  - Eye swelling [Not Recovered/Not Resolved]
  - Eye swelling [Recovered/Resolved]
  - Skin burning sensation [Not Recovered/Not Resolved]
  - Dry eye [Not Recovered/Not Resolved]
  - Skin burning sensation [Recovered/Resolved]
  - Skin exfoliation [Not Recovered/Not Resolved]
  - Skin hyperpigmentation [Not Recovered/Not Resolved]
  - Periorbital swelling [Recovered/Resolved]

NARRATIVE: CASE EVENT DATE: 20240101
